FAERS Safety Report 7817322-4 (Version None)
Quarter: 2011Q4

REPORT INFORMATION
  Report Type: 
  Country: None (occurrence: None)
  Receive Date: 20111012
  Receipt Date: 20110927
  Transmission Date: 20120403
  Serious: Yes (Other)
  Sender: FDA-Public Use
  Company Number: FK201102119

PATIENT
  Age: 45 Year
  Sex: Male

DRUGS (2)
  1. CISPLATIN [Suspect]
     Indication: LUNG SQUAMOUS CELL CARCINOMA STAGE III
     Dosage: 75 MG/M2, ON DAYS 1 OF EACH 21 DAY CYCLE
  2. GEMCITABINE [Suspect]
     Indication: LUNG SQUAMOUS CELL CARCINOMA STAGE III
     Dosage: 1000 MG/M2, ON DAYS 1 AND 8

REACTIONS (13)
  - PARAPLEGIA [None]
  - NEUTROPENIA [None]
  - CSF PROTEIN INCREASED [None]
  - EXTENSOR PLANTAR RESPONSE [None]
  - GASTROINTESTINAL DISORDER [None]
  - HYPOAESTHESIA [None]
  - THROMBOCYTOPENIA [None]
  - NEUROPATHY PERIPHERAL [None]
  - SENSORY LOSS [None]
  - MUSCULAR WEAKNESS [None]
  - MYELOPATHY [None]
  - PARAESTHESIA [None]
  - URINARY RETENTION [None]
